FAERS Safety Report 5287555-2 (Version None)
Quarter: 2007Q1

REPORT INFORMATION
  Report Type: 
  Country: None (occurrence: None)
  Receive Date: 20070126
  Receipt Date: 20061120
  Transmission Date: 20070707
  Serious: No
  Sender: FDA-Public Use
  Company Number: 2006CT000995

PATIENT
  Age: 50 Year
  Sex: Female
  Weight: 73.4827 kg

DRUGS (10)
  1. VENTAVIS [Suspect]
     Indication: PULMONARY HYPERTENSION
     Dosage: 5 UG;5XD;INH
     Route: 055
     Dates: start: 20060228
  2. SILDENAFIL CITRATE [Concomitant]
  3. FUROSEMIDE [Concomitant]
  4. METOPROLOL SUCCINATE [Concomitant]
  5. RANITIDINE [Concomitant]
  6. PHENYTOIN [Concomitant]
  7. POTASSIUM ACETATE [Concomitant]
  8. IPRATROPIUM BROMDIE/SALBUTAMOL SULFATE [Concomitant]
  9. AZMACORT [Concomitant]
  10. TYLENOL [Concomitant]

REACTIONS (2)
  - DYSPNOEA [None]
  - FLUID RETENTION [None]
